FAERS Safety Report 5662592-4 (Version None)
Quarter: 2008Q1

REPORT INFORMATION
  Report Type: 
  Country: None (occurrence: None)
  Receive Date: 20080219
  Receipt Date: 20071029
  Transmission Date: 20080703
  Serious: Yes (Death)
  Sender: FDA-Public Use
  Company Number: 2007093840

PATIENT
  Weight: 66 kg

DRUGS (1)
  1. FRAGMIN [Suspect]
     Dosage: 10000 UNITS/0.2 ML, SUBCUTANEOUS
     Route: 058
     Dates: start: 20071017, end: 20071028

REACTIONS (1)
  - HAEMORRHAGE INTRACRANIAL [None]
